FAERS Safety Report 15632479 (Version 1)
Quarter: 2018Q4

REPORT INFORMATION
  Report Type: Spontaneous
  Country: ES (occurrence: ES)
  Receive Date: 20181119
  Receipt Date: 20181119
  Transmission Date: 20190205
  Serious: Yes (Hospitalization, Other)
  Sender: FDA-Public Use
  Company Number: ES-GILEAD-2018-0374794

PATIENT
  Age: 80 Year
  Sex: Female

DRUGS (3)
  1. VIREAD [Suspect]
     Active Substance: TENOFOVIR DISOPROXIL FUMARATE
     Indication: PROPHYLAXIS
     Dosage: 245 MG,Q24H
     Route: 048
     Dates: start: 20180711, end: 201808
  2. PREDNISONA [Interacting]
     Active Substance: PREDNISONE
     Indication: HAEMOLYTIC ANAEMIA
     Dosage: 30MG EVERY 24 HOURS IN A DECREASING REGIMEN UNTIL 10MG EVERY 24 HOURS
     Route: 048
     Dates: start: 20180705
  3. METILPREDNISOLONE [Concomitant]
     Active Substance: METHYLPREDNISOLONE
     Indication: HAEMOLYTIC ANAEMIA
     Dosage: 1 MG/KG; Q24H
     Route: 042
     Dates: start: 20180705, end: 20180707

REACTIONS (1)
  - Spinal compression fracture [Recovering/Resolving]

NARRATIVE: CASE EVENT DATE: 20180805
